FAERS Safety Report 8061139-5 (Version None)
Quarter: 2012Q1

REPORT INFORMATION
  Report Type: 
  Country: None (occurrence: None)
  Receive Date: 20120120
  Receipt Date: 20110527
  Transmission Date: 20120608
  Serious: No
  Sender: FDA-Public Use
  Company Number: US-ALLERGAN-1107353US

PATIENT
  Age: 73 Year
  Sex: Female

DRUGS (2)
  1. RESTASIS [Suspect]
     Indication: EYE IRRITATION
     Dosage: 1 GTT, BID
     Route: 047
     Dates: start: 20110425, end: 20110508
  2. PRED FORTE [Concomitant]
     Indication: EYE INFLAMMATION
     Dosage: 1 GTT, UNK
     Route: 047
     Dates: start: 20110425, end: 20110508

REACTIONS (1)
  - EYE IRRITATION [None]
